FAERS Safety Report 9532199 (Version 2)
Quarter: 2013Q3

REPORT INFORMATION
  Report Type: Spontaneous
  Country: MX (occurrence: MX)
  Receive Date: 20130918
  Receipt Date: 20130918
  Transmission Date: 20140515
  Serious: Yes (Other)
  Sender: FDA-Public Use
  Company Number: MX-BMSGILMSD-2013-0070741

PATIENT
  Age: 57 Year
  Sex: Male

DRUGS (1)
  1. ATRIPLA [Suspect]
     Indication: HIV INFECTION
     Dosage: 1 DF, QD
     Route: 048

REACTIONS (4)
  - AIDS dementia complex [Unknown]
  - Epilepsy [Not Recovered/Not Resolved]
  - Convulsion [Not Recovered/Not Resolved]
  - Tremor [Unknown]
